FAERS Safety Report 18148258 (Version 1)
Quarter: 2020Q3

REPORT INFORMATION
  Report Type: Spontaneous
  Country: US (occurrence: US)
  Receive Date: 20200814
  Receipt Date: 20200814
  Transmission Date: 20201103
  Serious: Yes (Other)
  Sender: FDA-Public Use
  Company Number: US-HIKMA PHARMACEUTICALS USA INC.-US-H14001-20-03738

PATIENT
  Sex: Female
  Weight: 61.2 kg

DRUGS (5)
  1. MOVANTIK [Interacting]
     Active Substance: NALOXEGOL OXALATE
     Indication: CONSTIPATION
     Route: 048
     Dates: start: 20200624
  2. METHADONE [Suspect]
     Active Substance: METHADONE HYDROCHLORIDE
     Indication: RESTLESS LEGS SYNDROME
     Dosage: UNKNOWN
     Route: 065
  3. MOVANTIK [Interacting]
     Active Substance: NALOXEGOL OXALATE
     Route: 048
     Dates: start: 202006
  4. MIRAPEXIN [Concomitant]
     Active Substance: PRAMIPEXOLE
     Indication: PRODUCT USED FOR UNKNOWN INDICATION
     Dosage: UNKNOWN
     Route: 065
  5. MOVANTIK [Interacting]
     Active Substance: NALOXEGOL OXALATE
     Route: 048
     Dates: start: 2020

REACTIONS (10)
  - Withdrawal syndrome [Unknown]
  - Headache [Recovered/Resolved]
  - Diarrhoea [Recovered/Resolved]
  - Vomiting [Recovered/Resolved]
  - Constipation [Unknown]
  - Nausea [Recovered/Resolved]
  - Restlessness [Unknown]
  - Abdominal pain upper [Recovered/Resolved]
  - Drug interaction [Not Recovered/Not Resolved]
  - Retching [Recovered/Resolved]
